FAERS Safety Report 14506844 (Version 1)
Quarter: 2018Q1

REPORT INFORMATION
  Report Type: Spontaneous
  Country: US (occurrence: US)
  Receive Date: 20180207
  Receipt Date: 20180207
  Transmission Date: 20180509
  Serious: Yes (Other)
  Sender: FDA-Public Use
  Company Number: None

PATIENT

DRUGS (3)
  1. AZITHROMYCIN ANHYDROUS. [Concomitant]
     Active Substance: AZITHROMYCIN ANHYDROUS
  2. AMOXICILLIN. [Concomitant]
     Active Substance: AMOXICILLIN
  3. WARFARIN [Suspect]
     Active Substance: WARFARIN

REACTIONS (5)
  - Cough [None]
  - Abdominal pain [None]
  - International normalised ratio increased [None]
  - Arthralgia [None]
  - Retroperitoneal haemorrhage [None]
